FAERS Safety Report 11055801 (Version 2)
Quarter: 2015Q2

REPORT INFORMATION
  Report Type: Spontaneous
  Country: BR (occurrence: BR)
  Receive Date: 20150422
  Receipt Date: 20150501
  Transmission Date: 20150821
  Serious: Yes (Hospitalization, Other)
  Sender: FDA-Public Use
  Company Number: BR-ABBVIE-15P-020-1379372-00

PATIENT
  Sex: Female
  Weight: 64 kg

DRUGS (4)
  1. DEPAKOTE ER [Suspect]
     Active Substance: DIVALPROEX SODIUM
     Indication: EPILEPSY
     Dosage: DAILY DOSE: 1000MG; 500 MG AT 8 AM AND 500 MG AT 8 PM
     Route: 065
     Dates: start: 2012
  2. OMEPRAZOLE. [Concomitant]
     Active Substance: OMEPRAZOLE
     Indication: GASTROOESOPHAGEAL REFLUX DISEASE
     Dosage: DAILY DOSE: 40MG; AT 8 AM AND AT 20 PM
     Dates: end: 20150320
  3. CARVEDILOL. [Concomitant]
     Active Substance: CARVEDILOL
     Indication: CARDIAC DISORDER
     Dosage: DAILY DOSE: 12.5MG; IN THE MORNING 8 AM AND AT NIGHT 8 PM
     Dates: start: 2012
  4. SINVASTATINA [Concomitant]
     Active Substance: SIMVASTATIN
     Indication: BLOOD CHOLESTEROL
     Dosage: DAILY DOSE: 20 MG AT 20 PM
     Dates: start: 2012

REACTIONS (12)
  - Dementia Alzheimer^s type [Unknown]
  - Bedridden [Unknown]
  - Incorrect route of drug administration [Unknown]
  - Abasia [Unknown]
  - Personality change [Unknown]
  - Confusional state [Unknown]
  - Hallucination [Unknown]
  - Disturbance in attention [Unknown]
  - Senile dementia [Unknown]
  - Epilepsy [Unknown]
  - Bacterial test positive [Unknown]
  - Communication disorder [Unknown]

NARRATIVE: CASE EVENT DATE: 2012
